FAERS Safety Report 19312847 (Version 1)
Quarter: 2021Q2

REPORT INFORMATION
  Report Type: Spontaneous
  Country: US (occurrence: US)
  Receive Date: 20210526
  Receipt Date: 20210526
  Transmission Date: 20210717
  Serious: Yes (Hospitalization)
  Sender: FDA-Public Use
  Company Number: None

PATIENT
  Age: 61 Year
  Sex: Female

DRUGS (10)
  1. CAPECITABINE. [Suspect]
     Active Substance: CAPECITABINE
     Indication: RHEUMATOID ARTHRITIS
     Route: 048
     Dates: start: 20210305
  2. TYLENOL [Concomitant]
     Active Substance: ACETAMINOPHEN
  3. VITAMIN D [Concomitant]
     Active Substance: VITAMIN D NOS
  4. VIMPAT [Concomitant]
     Active Substance: LACOSAMIDE
  5. CALCIUM [Concomitant]
     Active Substance: CALCIUM
  6. OXYCODONE [Concomitant]
     Active Substance: OXYCODONE
  7. ZOLOFT [Concomitant]
     Active Substance: SERTRALINE HYDROCHLORIDE
  8. LEVETIRACETAM. [Concomitant]
     Active Substance: LEVETIRACETAM
  9. COLACE [Concomitant]
     Active Substance: DOCUSATE SODIUM
  10. KEPPRA [Concomitant]
     Active Substance: LEVETIRACETAM

REACTIONS (1)
  - Spinal compression fracture [None]

NARRATIVE: CASE EVENT DATE: 20210520
